FAERS Safety Report 25980788 (Version 1)
Quarter: 2025Q4

REPORT INFORMATION
  Report Type: Spontaneous
  Country: US (occurrence: US)
  Receive Date: 20251030
  Receipt Date: 20251030
  Transmission Date: 20260118
  Serious: No
  Sender: SANDOZ
  Company Number: US-SANDOZ-SDZ2025US079548

PATIENT
  Age: 57 Year
  Sex: Male

DRUGS (1)
  1. HYRIMOZ [Suspect]
     Active Substance: ADALIMUMAB-ADAZ
     Indication: Rheumatoid arthritis
     Dosage: 40 MG, Q2W
     Route: 030
     Dates: start: 20250502

REACTIONS (3)
  - Joint swelling [Unknown]
  - Arthralgia [Unknown]
  - Product dose omission issue [Unknown]

NARRATIVE: CASE EVENT DATE: 20250901
